FAERS Safety Report 23873401 (Version 1)
Quarter: 2024Q2

REPORT INFORMATION
  Report Type: Spontaneous
  Country: US (occurrence: US)
  Receive Date: 20240520
  Receipt Date: 20240520
  Transmission Date: 20240716
  Serious: No
  Sender: FDA-Public Use
  Company Number: US-PFIZER INC-202400107994

PATIENT
  Age: 4 Year
  Sex: Male
  Weight: 10.89 kg

DRUGS (1)
  1. GENOTROPIN [Suspect]
     Active Substance: SOMATROPIN
     Indication: Growth disorder
     Dosage: INJECT 0.6MG UNDER THE SKIN 6 DAYS A WEEK
     Dates: start: 20240508

REACTIONS (6)
  - Product storage error [Unknown]
  - Poor quality product administered [Unknown]
  - Product odour abnormal [Unknown]
  - Device breakage [Unknown]
  - Device leakage [Unknown]
  - Device physical property issue [Unknown]
